FAERS Safety Report 11289908 (Version 1)
Quarter: 2015Q3

REPORT INFORMATION
  Report Type: Spontaneous
  Country: US (occurrence: US)
  Receive Date: 20150721
  Receipt Date: 20150721
  Transmission Date: 20151125
  Serious: No
  Sender: FDA-Public Use
  Company Number: US-009507513-1507USA001666

PATIENT
  Sex: Female

DRUGS (3)
  1. EMEND [Suspect]
     Active Substance: APREPITANT
     Dosage: 80 MG, ONCE
     Route: 048
     Dates: start: 20150701, end: 20150701
  2. EMEND [Suspect]
     Active Substance: APREPITANT
     Dosage: 80 MG, ONCE
     Route: 048
     Dates: start: 20150702, end: 20150702
  3. EMEND [Suspect]
     Active Substance: APREPITANT
     Dosage: 125 MG, ONCE
     Route: 048
     Dates: start: 20150630, end: 20150630

REACTIONS (3)
  - Asthenia [Unknown]
  - Product quality issue [Unknown]
  - Underdose [Unknown]

NARRATIVE: CASE EVENT DATE: 2015
